FAERS Safety Report 14374717 (Version 1)
Quarter: 2018Q1

REPORT INFORMATION
  Report Type: Spontaneous
  Country: US (occurrence: US)
  Receive Date: 20180111
  Receipt Date: 20180111
  Transmission Date: 20180509
  Serious: No
  Sender: FDA-Public Use
  Company Number: US-TEVA-2018-US-843645

PATIENT
  Sex: Male

DRUGS (1)
  1. PROAIR HFA [Suspect]
     Active Substance: ALBUTEROL SULFATE
     Dosage: FREQUENCY: TWO PUFFS EVERY FOUR TO SIX HOURS AS NEEDED
     Route: 065
     Dates: start: 2016

REACTIONS (2)
  - Drug effect incomplete [Unknown]
  - Productive cough [Unknown]
